FAERS Safety Report 4950580-2 (Version None)
Quarter: 2006Q1

REPORT INFORMATION
  Report Type: 
  Country: None (occurrence: None)
  Receive Date: 20060322
  Receipt Date: 20060208
  Transmission Date: 20060701
  Serious: Yes (Hospitalization, Other)
  Sender: FDA-Public Use
  Company Number: US-MERCK-0602USA02280

PATIENT
  Age: 82 Year
  Sex: Male
  Weight: 73 kg

DRUGS (2)
  1. VIOXX [Suspect]
     Indication: ARTHRITIS
     Route: 048
     Dates: start: 20010201, end: 20040930
  2. VIOXX [Suspect]
     Route: 048
     Dates: start: 20010201, end: 20040930

REACTIONS (8)
  - ADVERSE EVENT [None]
  - BACK PAIN [None]
  - CARDIAC DISORDER [None]
  - CELLULITIS [None]
  - CHEST PAIN [None]
  - DEPRESSION [None]
  - MYOCARDIAL INFARCTION [None]
  - PAIN IN EXTREMITY [None]
